FAERS Safety Report 10211064 (Version 1)
Quarter: 2014Q2

REPORT INFORMATION
  Report Type: Report from Study
  Country: MX (occurrence: MX)
  Receive Date: 20140602
  Receipt Date: 20140602
  Transmission Date: 20141212
  Serious: Yes (Other)
  Sender: FDA-Public Use
  Company Number: PHHY2014MX067259

PATIENT
  Age: 37 Year
  Sex: Male

DRUGS (1)
  1. EXFORGE HCT [Suspect]
     Indication: HYPERTENSION
     Dosage: 0.5 DF (320/10/25 MG), BID (IN MORNING AND AT NIGHT)

REACTIONS (3)
  - Diabetes mellitus [Not Recovered/Not Resolved]
  - Anxiety [Unknown]
  - Wrong technique in drug usage process [Not Recovered/Not Resolved]
